FAERS Safety Report 20389981 (Version 4)
Quarter: 2023Q2

REPORT INFORMATION
  Report Type: Report from Study
  Country: KR (occurrence: KR)
  Receive Date: 20220128
  Receipt Date: 20230411
  Transmission Date: 20230722
  Serious: Yes (Other)
  Sender: FDA-Public Use
  Company Number: KR-TAKEDA-2022TUS004501

PATIENT
  Sex: Female
  Weight: 60.3 kg

DRUGS (14)
  1. IXAZOMIB [Suspect]
     Active Substance: IXAZOMIB
     Indication: Plasma cell myeloma
     Dosage: 4 MILLIGRAM
     Route: 065
     Dates: start: 20211022
  2. DEXAMETHASONE [Suspect]
     Active Substance: DEXAMETHASONE
     Indication: Plasma cell myeloma
     Dosage: 40 MILLIGRAM
     Route: 065
     Dates: start: 20211022, end: 20211112
  3. DEXAMETHASONE [Suspect]
     Active Substance: DEXAMETHASONE
     Dosage: 20 MILLIGRAM
     Route: 065
     Dates: start: 20220101
  4. LENALIDOMIDE [Suspect]
     Active Substance: LENALIDOMIDE
     Indication: Plasma cell myeloma
     Dosage: 25 MILLIGRAM
     Route: 065
     Dates: start: 20211022
  5. Vacrax [Concomitant]
     Indication: Infection prophylaxis
     Dosage: 400 MILLIGRAM, BID
     Route: 048
     Dates: start: 20211022, end: 20211118
  6. ASPIRIN [Concomitant]
     Active Substance: ASPIRIN
     Indication: Hyperlipidaemia
     Dosage: 100 MILLIGRAM, QD
     Route: 048
     Dates: start: 20211022, end: 20211118
  7. MAGNESIUM HYDROXIDE [Concomitant]
     Active Substance: MAGNESIUM HYDROXIDE
     Indication: Constipation prophylaxis
     Dosage: 500 MILLIGRAM, TID
     Route: 048
     Dates: start: 20211022, end: 20211118
  8. SULFAMETHOXAZOLE\TRIMETHOPRIM [Concomitant]
     Active Substance: SULFAMETHOXAZOLE\TRIMETHOPRIM
     Indication: Infection prophylaxis
     Dosage: 400 MILLIGRAM, QD
     Route: 048
     Dates: end: 20211118
  9. OROSARTAN [Concomitant]
     Indication: Essential hypertension
     Dosage: 5 MILLIGRAM, QD
     Route: 048
  10. CALCIUM CARBONATE\CHOLECALCIFEROL [Concomitant]
     Active Substance: CALCIUM CARBONATE\CHOLECALCIFEROL
     Indication: Osteoporosis
     Dosage: 250 MILLIGRAM, QD
     Route: 048
  11. POLYBUTINE [Concomitant]
     Indication: Pain prophylaxis
     Dosage: 100 MILLIGRAM, QD
     Route: 048
     Dates: end: 20211125
  12. PANORIN [Concomitant]
     Indication: Osteoporosis
     Dosage: 60 MILLIGRAM, QD
     Route: 042
     Dates: start: 20211022, end: 20211022
  13. PANORIN [Concomitant]
     Dosage: 60 MILLIGRAM, QD
     Route: 042
     Dates: start: 20211105, end: 20211105
  14. Gcflu quadrivalent [Concomitant]
     Indication: Prophylaxis
     Dosage: 0.5 MILLILITER, QD
     Route: 030
     Dates: start: 20211022, end: 20211022

REACTIONS (1)
  - Bronchiectasis [Recovered/Resolved]

NARRATIVE: CASE EVENT DATE: 20211119
